FAERS Safety Report 4541354-5 (Version None)
Quarter: 2004Q4

REPORT INFORMATION
  Report Type: 
  Country: None (occurrence: None)
  Receive Date: 20041227
  Receipt Date: 20041028
  Transmission Date: 20050328
  Serious: Yes (Life-Threatening, Hospitalization)
  Sender: FDA-Public Use
  Company Number: ACO_0014_2004

PATIENT
  Age: 35 Year
  Sex: Female

DRUGS (14)
  1. TIZANIDINE [Suspect]
     Indication: ANXIETY
     Dosage: 2000 MG QDAY PO
     Route: 048
  2. TIZANIDINE [Suspect]
     Indication: MUSCLE SPASMS
     Dosage: 2000 MG QDAY PO
     Route: 048
  3. TIZANIDINE [Suspect]
     Indication: PAIN
     Dosage: 2000 MG QDAY PO
     Route: 048
  4. TIZANIDINE [Suspect]
     Indication: ANXIETY
     Dosage: 12 MG QDAY PO
     Route: 048
  5. TIZANIDINE [Suspect]
     Indication: MUSCLE SPASMS
     Dosage: 12 MG QDAY PO
     Route: 048
  6. TIZANIDINE [Suspect]
     Indication: PAIN
     Dosage: 12 MG QDAY PO
     Route: 048
  7. ZOLPIDEM TARTRATE [Suspect]
     Indication: ANXIETY
     Dosage: 7500 MG QDAY PO
     Route: 048
  8. ZOLPIDEM TARTRATE [Suspect]
     Indication: MUSCLE SPASMS
     Dosage: 7500 MG QDAY PO
     Route: 048
  9. ZOLPIDEM TARTRATE [Suspect]
     Indication: PAIN
     Dosage: 7500 MG QDAY PO
     Route: 048
  10. ZOLPIDEM TARTRATE [Suspect]
     Indication: ANXIETY
     Dosage: DF QDAY PO
     Route: 048
  11. ZOLPIDEM TARTRATE [Suspect]
     Indication: MUSCLE SPASMS
     Dosage: DF QDAY PO
     Route: 048
  12. ZOLPIDEM TARTRATE [Suspect]
     Indication: PAIN
     Dosage: DF QDAY PO
     Route: 048
  13. XYLOMETAZOLINE [Suspect]
     Dosage: 100 MG QDAY
  14. XYLOMETAZOLINE [Suspect]
     Dosage: DF QDAY

REACTIONS (10)
  - ABNORMAL BEHAVIOUR [None]
  - ANXIETY [None]
  - CONVULSION [None]
  - DELIRIUM [None]
  - DRUG WITHDRAWAL SYNDROME [None]
  - HYPOTONIA [None]
  - MUSCLE SPASMS [None]
  - PARAESTHESIA [None]
  - SOCIAL AVOIDANT BEHAVIOUR [None]
  - TREATMENT NONCOMPLIANCE [None]
